FAERS Safety Report 6243836-7 (Version None)
Quarter: 2009Q2

REPORT INFORMATION
  Report Type: 
  Country: None (occurrence: None)
  Receive Date: 20090624
  Receipt Date: 20090611
  Transmission Date: 20091009
  Serious: Yes (Hospitalization)
  Sender: FDA-Public Use
  Company Number: BE-GENENTECH-279908

PATIENT
  Sex: Female

DRUGS (11)
  1. TRASTUZUMAB [Suspect]
     Indication: BREAST CANCER
     Dosage: 400 MG, Q3W
     Route: 042
     Dates: start: 20090209
  2. AVASTIN [Suspect]
     Indication: BREAST CANCER
     Dosage: 750 MG, Q3W
     Route: 042
     Dates: start: 20090209
  3. DOCETAXEL [Suspect]
     Indication: BREAST CANCER
     Dosage: 112 MG, Q3W
     Route: 042
     Dates: start: 20090209
  4. CARBOPLATIN [Suspect]
     Indication: BREAST CANCER
     Dosage: 710 MG, Q3W
     Route: 042
     Dates: start: 20090209
  5. AERIUS [Concomitant]
     Indication: DRUG USE FOR UNKNOWN INDICATION
  6. CETIRIZINE [Concomitant]
     Indication: DRUG USE FOR UNKNOWN INDICATION
  7. MEDROL [Concomitant]
     Indication: DRUG USE FOR UNKNOWN INDICATION
  8. ZANTAC [Concomitant]
     Indication: DRUG USE FOR UNKNOWN INDICATION
  9. LORMETAZEPAM [Concomitant]
     Indication: DRUG USE FOR UNKNOWN INDICATION
  10. XANAX [Concomitant]
     Indication: DRUG USE FOR UNKNOWN INDICATION
  11. FLUIDS (UNK INGREDIENTS) [Concomitant]
     Indication: DRUG USE FOR UNKNOWN INDICATION

REACTIONS (1)
  - RASH PRURITIC [None]
